FAERS Safety Report 9586367 (Version 4)
Quarter: 2013Q4

REPORT INFORMATION
  Report Type: Spontaneous
  Country: BR (occurrence: BR)
  Receive Date: 20131003
  Receipt Date: 20131216
  Transmission Date: 20140711
  Serious: Yes (Hospitalization, Other)
  Sender: FDA-Public Use
  Company Number: BR-ELI_LILLY_AND_COMPANY-BR201309010337

PATIENT
  Age: 49 Year
  Sex: Female

DRUGS (3)
  1. HUMALOG [Suspect]
     Indication: TYPE 1 DIABETES MELLITUS
     Dosage: UNK, UNKNOWN
     Route: 058
     Dates: start: 1998
  2. HUMALOG [Suspect]
     Dosage: UNK, UNKNOWN
     Route: 058
     Dates: start: 20130924
  3. LANTUS [Concomitant]
     Dosage: 24 IU, EACH MORNING
     Route: 065

REACTIONS (10)
  - Hyperglycaemic seizure [Unknown]
  - Cerebrovascular accident [Unknown]
  - Foot fracture [Not Recovered/Not Resolved]
  - Tendon rupture [Not Recovered/Not Resolved]
  - Hyperglycaemia [Not Recovered/Not Resolved]
  - Oral pruritus [Unknown]
  - Drug ineffective [Unknown]
  - Wound [Not Recovered/Not Resolved]
  - Inflammation [Not Recovered/Not Resolved]
  - Blood glucose fluctuation [Unknown]
